FAERS Safety Report 4328903-7 (Version None)
Quarter: 2004Q1

REPORT INFORMATION
  Report Type: 
  Country: None (occurrence: None)
  Receive Date: 20040331
  Receipt Date: 20040326
  Transmission Date: 20041129
  Serious: Yes (Death, Hospitalization)
  Sender: FDA-Public Use
  Company Number: 04-03-0332

PATIENT
  Age: 82 Year
  Sex: Male

DRUGS (3)
  1. CLOZAPINE [Suspect]
     Indication: SCHIZOPHRENIA
     Dosage: 100-275 MG QD ORAL
     Route: 048
     Dates: start: 20011101, end: 20040101
  2. EFFEXOR [Concomitant]
  3. AMANTADINE HCL [Concomitant]

REACTIONS (7)
  - ANAEMIA [None]
  - ASPIRATION [None]
  - DECUBITUS ULCER [None]
  - DEHYDRATION [None]
  - DEPRESSION [None]
  - HYPONATRAEMIA [None]
  - PNEUMONIA [None]
